FAERS Safety Report 8054702-9 (Version None)
Quarter: 2012Q1

REPORT INFORMATION
  Report Type: 
  Country: None (occurrence: None)
  Receive Date: 20120119
  Receipt Date: 20120112
  Transmission Date: 20120608
  Serious: No
  Sender: FDA-Public Use
  Company Number: US-PFIZER INC-2012003978

PATIENT
  Sex: Female
  Weight: 100.68 kg

DRUGS (4)
  1. LYRICA [Suspect]
     Indication: FIBROMYALGIA
     Dosage: 150 MG, 3X/DAY
     Route: 048
     Dates: start: 20080101, end: 20120101
  2. CLONIDINE [Concomitant]
     Dosage: UNK
  3. LAMICTAL [Concomitant]
     Dosage: UNK
  4. CELEXA [Concomitant]
     Dosage: UNK

REACTIONS (3)
  - WEIGHT DECREASED [None]
  - MYALGIA [None]
  - PAIN [None]
